FAERS Safety Report 10446668 (Version 1)
Quarter: 2014Q3

REPORT INFORMATION
  Report Type: Spontaneous
  Country: JP (occurrence: JP)
  Receive Date: 20140911
  Receipt Date: 20140911
  Transmission Date: 20150326
  Serious: Yes (Death)
  Sender: FDA-Public Use
  Company Number: JP-SA-2014SA121428

PATIENT
  Age: 61 Year
  Sex: Male
  Weight: 55 kg

DRUGS (4)
  1. GRACEPTOR [Concomitant]
     Active Substance: TACROLIMUS
     Route: 048
     Dates: start: 2013, end: 20140821
  2. LASIX [Concomitant]
     Active Substance: FUROSEMIDE
     Route: 048
     Dates: end: 20140821
  3. WARFARIN [Concomitant]
     Active Substance: WARFARIN
     Route: 048
     Dates: end: 20140821
  4. FABRAZYME [Suspect]
     Active Substance: AGALSIDASE BETA
     Indication: FABRY^S DISEASE
     Route: 041
     Dates: start: 20130719, end: 20140731

REACTIONS (1)
  - Pneumonia [Fatal]

NARRATIVE: CASE EVENT DATE: 20140822
